FAERS Safety Report 9160595 (Version 1)
Quarter: 2013Q1

REPORT INFORMATION
  Report Type: Spontaneous
  Country: BR (occurrence: BR)
  Receive Date: 20130313
  Receipt Date: 20130313
  Transmission Date: 20140127
  Serious: Yes (Death, Other)
  Sender: FDA-Public Use
  Company Number: PHHY2013BR024249

PATIENT
  Sex: Male
  Weight: 112 kg

DRUGS (2)
  1. FORASEQ [Suspect]
     Indication: CHRONIC OBSTRUCTIVE PULMONARY DISEASE
     Dosage: 1 INHALATION, QD
     Dates: start: 200902
  2. FORASEQ [Suspect]
     Indication: EMPHYSEMA

REACTIONS (1)
  - Hepatic cancer [Fatal]
